FAERS Safety Report 20667787 (Version 1)
Quarter: 2022Q2

REPORT INFORMATION
  Report Type: Spontaneous
  Country: US (occurrence: US)
  Receive Date: 20220404
  Receipt Date: 20220404
  Transmission Date: 20220721
  Serious: Yes (Other)
  Sender: FDA-Public Use
  Company Number: US-drreddys-LIT/USA/22/0148275

PATIENT
  Age: 12 Month
  Sex: Female

DRUGS (15)
  1. LEVETIRACETAM [Suspect]
     Active Substance: LEVETIRACETAM
     Indication: Epilepsia partialis continua
  2. LEVETIRACETAM [Suspect]
     Active Substance: LEVETIRACETAM
     Dosage: HIGH-DOSE
  3. FOSPHENYTOIN SODIUM [Suspect]
     Active Substance: FOSPHENYTOIN SODIUM
     Indication: Epilepsia partialis continua
  4. FOSPHENYTOIN SODIUM [Suspect]
     Active Substance: FOSPHENYTOIN SODIUM
     Dosage: HIGH-DOSE
  5. MIDAZOLAM [Suspect]
     Active Substance: MIDAZOLAM
     Indication: Epilepsia partialis continua
  6. MIDAZOLAM [Suspect]
     Active Substance: MIDAZOLAM
     Dosage: HIGH-DOSE
  7. PHENOBARBITAL [Concomitant]
     Active Substance: PHENOBARBITAL
     Indication: Epilepsia partialis continua
  8. LORAZEPAM [Concomitant]
     Active Substance: LORAZEPAM
     Indication: Epilepsia partialis continua
  9. VIGABATRIN [Concomitant]
     Active Substance: VIGABATRIN
     Indication: Epilepsia partialis continua
  10. DIAZEPAM [Concomitant]
     Active Substance: DIAZEPAM
     Indication: Epilepsia partialis continua
  11. TOPIRAMATE [Concomitant]
     Active Substance: TOPIRAMATE
     Indication: Epilepsia partialis continua
  12. IV immune-globulin [IVIG] [Concomitant]
     Indication: Rasmussen encephalitis
  13. PHENYTOIN [Concomitant]
     Active Substance: PHENYTOIN
     Indication: Epilepsia partialis continua
  14. OXCARBAZEPINE [Concomitant]
     Active Substance: OXCARBAZEPINE
     Indication: Epilepsia partialis continua
  15. CLONAZEPAM [Concomitant]
     Active Substance: CLONAZEPAM
     Indication: Epilepsia partialis continua

REACTIONS (1)
  - Drug ineffective [Unknown]
